FAERS Safety Report 16013281 (Version 1)
Quarter: 2019Q1

REPORT INFORMATION
  Report Type: Spontaneous
  Country: US (occurrence: US)
  Receive Date: 20190227
  Receipt Date: 20190227
  Transmission Date: 20190418
  Serious: No
  Sender: FDA-Public Use
  Company Number: US-NOVOPROD-603179

PATIENT
  Age: 50 Year
  Sex: Female

DRUGS (2)
  1. SAXENDA [Suspect]
     Active Substance: LIRAGLUTIDE
     Dosage: UNK (BACKED DOWN)
     Route: 058
  2. SAXENDA [Suspect]
     Active Substance: LIRAGLUTIDE
     Indication: PRODUCT USED FOR UNKNOWN INDICATION
     Dosage: UNK
     Route: 058

REACTIONS (4)
  - Nausea [Recovered/Resolved]
  - Abdominal pain [Recovered/Resolved]
  - Back pain [Recovered/Resolved]
  - Hepatic steatosis [Unknown]
